FAERS Safety Report 7742659-7 (Version None)
Quarter: 2011Q3

REPORT INFORMATION
  Report Type: 
  Country: None (occurrence: None)
  Receive Date: 20110830
  Receipt Date: 20110818
  Transmission Date: 20111222
  Serious: Yes (Hospitalization)
  Sender: FDA-Public Use
  Company Number: DSA_47424_2011

PATIENT
  Age: 64 Year
  Sex: Male

DRUGS (16)
  1. ASPIRIN [Concomitant]
  2. DOCUSATE SODIUM [Concomitant]
  3. PRAVASTATIN [Concomitant]
  4. DIGOXIN [Concomitant]
  5. FUROSEMIDE [Concomitant]
  6. METFORMIN HCL [Concomitant]
  7. DILTIAZEM HCL [Suspect]
     Dosage: (30 MG 1X/6 HOURS ORAL) ; (60 MG 1X/6 HOURS ORAL) ; (120 MG 1X/6 HOURS ORAL)
     Route: 048
     Dates: start: 20100101, end: 20100101
  8. DILTIAZEM HCL [Suspect]
     Dosage: (30 MG 1X/6 HOURS ORAL) ; (60 MG 1X/6 HOURS ORAL) ; (120 MG 1X/6 HOURS ORAL)
     Route: 048
     Dates: start: 20100101, end: 20100101
  9. DILTIAZEM HCL [Suspect]
     Dosage: (30 MG 1X/6 HOURS ORAL) ; (60 MG 1X/6 HOURS ORAL) ; (120 MG 1X/6 HOURS ORAL)
     Route: 048
     Dates: start: 20100101, end: 20100101
  10. GLIPIZIDE [Concomitant]
  11. OMEPRAZOLE [Concomitant]
  12. POLYETHYLENE GLYCOL [Concomitant]
  13. IPRATROPIUM BROMIDE [Concomitant]
  14. AMOXICILLIN [Concomitant]
  15. CLARITHROMYCIN [Concomitant]
  16. MOMETASONE FUROATE [Concomitant]

REACTIONS (11)
  - VOMITING [None]
  - BLOOD THYROID STIMULATING HORMONE DECREASED [None]
  - EPISTAXIS [None]
  - CARDIAC FAILURE [None]
  - MELAENA [None]
  - DYSPNOEA [None]
  - CONSTIPATION [None]
  - NAUSEA [None]
  - ABDOMINAL PAIN [None]
  - INFREQUENT BOWEL MOVEMENTS [None]
  - ILEUS PARALYTIC [None]
